FAERS Safety Report 5035842-5 (Version None)
Quarter: 2006Q2

REPORT INFORMATION
  Report Type: 
  Country: None (occurrence: None)
  Receive Date: 20060627
  Receipt Date: 20060614
  Transmission Date: 20061013
  Serious: Yes (Hospitalization, Other)
  Sender: FDA-Public Use
  Company Number: US-BRISTOL-MYERS SQUIBB COMPANY-13424692

PATIENT
  Age: 67 Year
  Sex: Female
  Weight: 82 kg

DRUGS (12)
  1. ERBITUX [Suspect]
     Indication: NON-SMALL CELL LUNG CANCER METASTATIC
     Route: 042
     Dates: start: 20060612, end: 20060612
  2. DOCETAXEL [Suspect]
     Indication: NON-SMALL CELL LUNG CANCER METASTATIC
     Route: 042
     Dates: start: 20060605, end: 20060605
  3. VICODIN [Concomitant]
  4. TYLENOL (CAPLET) [Concomitant]
  5. MIRALAX [Concomitant]
  6. BENADRYL [Concomitant]
  7. ADVIL [Concomitant]
  8. COMBIVENT [Concomitant]
  9. HYDROCHLOROTHIAZIDE [Concomitant]
  10. ADVAIR DISKUS 100/50 [Concomitant]
  11. MAGNESIUM SULFATE [Concomitant]
     Route: 042
     Dates: start: 20060613, end: 20060613
  12. NEUPOGEN [Concomitant]

REACTIONS (11)
  - BACTERIAL CULTURE POSITIVE [None]
  - FEBRILE NEUTROPENIA [None]
  - HAEMATOCRIT DECREASED [None]
  - HYPERGLYCAEMIA [None]
  - HYPOMAGNESAEMIA [None]
  - PLATELET COUNT DECREASED [None]
  - PNEUMONIA [None]
  - RASH [None]
  - RESPIRATORY DISTRESS [None]
  - SINUS TACHYCARDIA [None]
  - WHITE BLOOD CELL COUNT INCREASED [None]
